FAERS Safety Report 4287528-2 (Version None)
Quarter: 2004Q1

REPORT INFORMATION
  Report Type: 
  Country: None (occurrence: None)
  Receive Date: 20040209
  Receipt Date: 20030717
  Transmission Date: 20041129
  Serious: No
  Sender: FDA-Public Use
  Company Number: US-GLAXOSMITHKLINE-A0417053A

PATIENT
  Age: 67 Year
  Sex: Male

DRUGS (2)
  1. PAXIL CR [Suspect]
     Indication: ANXIETY
     Dosage: 25MG TWICE PER DAY
     Route: 048
     Dates: start: 20000101
  2. HIGH BLOOD PRESSURE PILL [Concomitant]

REACTIONS (1)
  - SEXUAL DYSFUNCTION [None]
